FAERS Safety Report 9285218 (Version 1)
Quarter: 2013Q2

REPORT INFORMATION
  Report Type: Spontaneous
  Country: GB (occurrence: GB)
  Receive Date: 20130513
  Receipt Date: 20130513
  Transmission Date: 20140414
  Serious: Yes (Hospitalization)
  Sender: FDA-Public Use
  Company Number: GB-MYLANLABS-2013S1009500

PATIENT
  Age: 24 Year
  Sex: Female

DRUGS (2)
  1. AZATHIOPRINE [Suspect]
     Indication: CROHN^S DISEASE
     Route: 048
     Dates: start: 20100902
  2. REMICADE [Suspect]
     Indication: CROHN^S DISEASE
     Dosage: 1/8 WEEKS
     Route: 042
     Dates: start: 20110309, end: 20121009

REACTIONS (2)
  - Exposure during pregnancy [Recovered/Resolved]
  - Postpartum disorder [Unknown]
